FAERS Safety Report 15676983 (Version 2)
Quarter: 2019Q1

REPORT INFORMATION
  Report Type: Spontaneous
  Country: US (occurrence: US)
  Receive Date: 20181130
  Receipt Date: 20190118
  Transmission Date: 20190417
  Serious: Yes (Other)
  Sender: FDA-Public Use
  Company Number: US-ASTRAZENECA-2018SF56415

PATIENT
  Age: 27154 Day
  Sex: Female
  Weight: 72.6 kg

DRUGS (8)
  1. SYMBICORT [Suspect]
     Active Substance: BUDESONIDE\FORMOTEROL FUMARATE DIHYDRATE
     Indication: CHRONIC OBSTRUCTIVE PULMONARY DISEASE
     Dosage: 160/4.5 MCG TWO RESPITORY INHALATIONS TWICE A DAY
     Route: 055
  2. DALIRESP [Suspect]
     Active Substance: ROFLUMILAST
     Indication: CHRONIC OBSTRUCTIVE PULMONARY DISEASE
     Route: 048
  3. SYMBICORT [Suspect]
     Active Substance: BUDESONIDE\FORMOTEROL FUMARATE DIHYDRATE
     Indication: EMPHYSEMA
     Dosage: 160/4.5 MCG TWO RESPITORY INHALATIONS TWICE A DAY
     Route: 055
  4. DALIRESP [Suspect]
     Active Substance: ROFLUMILAST
     Indication: EMPHYSEMA
     Route: 048
  5. ALBUTEROL IN NEBULIZER [Concomitant]
     Indication: EMERGENCY CARE
     Dosage: AS REQUIRED
  6. SPIRVA HANDIHALER [Concomitant]
     Indication: CHRONIC OBSTRUCTIVE PULMONARY DISEASE
     Route: 055
  7. SPIRVA HANDIHALER [Concomitant]
     Indication: EMPHYSEMA
     Route: 055
  8. PROAIR HFA [Concomitant]
     Active Substance: ALBUTEROL SULFATE
     Indication: INHALATION THERAPY
     Dosage: AS REQUIRED
     Route: 055

REACTIONS (8)
  - Macular degeneration [Unknown]
  - Device malfunction [Unknown]
  - Chest discomfort [Not Recovered/Not Resolved]
  - Cough [Unknown]
  - Intentional device misuse [Not Recovered/Not Resolved]
  - Product dose omission [Unknown]
  - Confusional state [Unknown]
  - Retinal tear [Unknown]

NARRATIVE: CASE EVENT DATE: 20181123
